FAERS Safety Report 6809364-2 (Version None)
Quarter: 2010Q2

REPORT INFORMATION
  Report Type: 
  Country: None (occurrence: None)
  Receive Date: 20100630
  Receipt Date: 20100621
  Transmission Date: 20101027
  Serious: Yes (Disabling)
  Sender: FDA-Public Use
  Company Number: CA-ASTRAZENECA-2010SE29257

PATIENT
  Age: 44 Year
  Sex: Male
  Weight: 27.2 kg

DRUGS (6)
  1. SEROQUEL [Suspect]
     Route: 048
  2. SEROQUEL [Suspect]
     Route: 048
  3. SEROQUEL [Suspect]
     Route: 048
  4. RISPERDAL [Suspect]
     Route: 048
  5. LUVOX [Suspect]
     Route: 048
  6. CYCLOBENZAPRINE [Concomitant]
     Route: 048

REACTIONS (9)
  - APHTHOUS STOMATITIS [None]
  - COUGH [None]
  - DRY MOUTH [None]
  - DRY THROAT [None]
  - EJACULATION DISORDER [None]
  - GLOSSITIS [None]
  - GLOSSODYNIA [None]
  - INCREASED UPPER AIRWAY SECRETION [None]
  - SOMNOLENCE [None]
